FAERS Safety Report 4474561-0 (Version None)
Quarter: 2004Q3

REPORT INFORMATION
  Report Type: 
  Country: None (occurrence: None)
  Receive Date: 20040923
  Receipt Date: 20040706
  Transmission Date: 20050211
  Serious: No
  Sender: FDA-Public Use
  Company Number: USA040771938

PATIENT
  Age: 82 Year
  Sex: Female

DRUGS (4)
  1. FORTEO [Suspect]
     Indication: OSTEOPOROSIS
     Dosage: 20 UG DAY
     Dates: start: 20040614, end: 20040703
  2. OSCAL (CALCIUM CARBONATE) [Concomitant]
  3. COD-LIVER OIL [Concomitant]
  4. VITAMIN E [Concomitant]

REACTIONS (4)
  - COLD SWEAT [None]
  - DIZZINESS [None]
  - FEELING ABNORMAL [None]
  - NAUSEA [None]
